FAERS Safety Report 24250844 (Version 1)
Quarter: 2024Q3

REPORT INFORMATION
  Report Type: Spontaneous
  Country: US (occurrence: US)
  Receive Date: 20240826
  Receipt Date: 20240826
  Transmission Date: 20241016
  Serious: No
  Sender: BRACCO
  Company Number: US-BRACCO-2024US01203

PATIENT

DRUGS (1)
  1. KINEVAC [Suspect]
     Active Substance: SINCALIDE
     Dosage: UNK UNK, SINGLE
     Dates: start: 20240301, end: 20240301

REACTIONS (1)
  - Drug ineffective [Unknown]

NARRATIVE: CASE EVENT DATE: 20240301
